FAERS Safety Report 6870973-6 (Version None)
Quarter: 2010Q2

REPORT INFORMATION
  Report Type: 
  Country: None (occurrence: None)
  Receive Date: 20100528
  Receipt Date: 20100316
  Transmission Date: 20101027
  Serious: No
  Sender: FDA-Public Use
  Company Number: 2010034532

PATIENT
  Age: 84 Year
  Sex: Female
  Weight: 73 kg

DRUGS (8)
  1. TOVIAZ [Suspect]
     Indication: HYPERTONIC BLADDER
     Dosage: 4 MG, 1X/DAY, ORAL
     Route: 048
     Dates: start: 20100308
  2. FOSAMAX [Suspect]
     Indication: OSTEOPENIA
     Dosage: 70 MG, WEEKLY, ORAL
     Route: 048
  3. VACCINIUM MACROCARPON (VACCINIUM MACROCARPON) [Suspect]
  4. PREDNISONE TAB [Concomitant]
  5. DIOVAN HCT [Concomitant]
  6. AMLODIPINE [Concomitant]
  7. PRIMIDONE [Concomitant]
  8. CYCLOPHOSPHAMIDE [Concomitant]

REACTIONS (3)
  - DRUG INEFFECTIVE [None]
  - MIDDLE INSOMNIA [None]
  - POLLAKIURIA [None]
